FAERS Safety Report 23264318 (Version 1)
Quarter: 2023Q4

REPORT INFORMATION
  Report Type: Spontaneous
  Country: JP (occurrence: JP)
  Receive Date: 20231205
  Receipt Date: 20231205
  Transmission Date: 20240109
  Serious: Yes (Hospitalization)
  Sender: FDA-Public Use
  Company Number: JP-PFIZER INC-PV202300169600

PATIENT
  Age: 76 Year
  Sex: Male
  Weight: 80 kg

DRUGS (8)
  1. PACLITAXEL [Suspect]
     Active Substance: PACLITAXEL
     Indication: Oesophageal carcinoma
     Dosage: 190 MG, DAILY
     Route: 042
     Dates: start: 20231012, end: 20231012
  2. PACLITAXEL [Suspect]
     Active Substance: PACLITAXEL
     Dosage: 190 MG, DAILY (VIA PICC, LOT# WAS THE SAME AS THE FIRST DOSE OR GK0124AA, EXPIRATION SEP2025)
     Route: 042
     Dates: start: 20231020, end: 20231020
  3. PALONOSETRON [Concomitant]
     Active Substance: PALONOSETRON
     Dosage: 0.75 MG, DAILY
     Route: 042
     Dates: start: 20231012, end: 20231012
  4. PALONOSETRON [Concomitant]
     Active Substance: PALONOSETRON
     Dosage: 0.75 MG, DAILY (VIA PERIPHERALLY INSERTED CENTRAL CATHETER)
     Route: 042
     Dates: start: 20231020, end: 20231020
  5. DEXAMETHASONE SODIUM PHOSPHATE [Concomitant]
     Active Substance: DEXAMETHASONE PHOSPHATE\DEXAMETHASONE SODIUM PHOSPHATE
     Dosage: 6.6 MG, DAILY
     Route: 042
     Dates: start: 20231012, end: 20231012
  6. DEXAMETHASONE SODIUM PHOSPHATE [Concomitant]
     Active Substance: DEXAMETHASONE PHOSPHATE\DEXAMETHASONE SODIUM PHOSPHATE
     Dosage: 6.6 MG, DAILY (VIA PERIPHERALLY INSERTED CENTRAL CATHETER)
     Route: 042
     Dates: start: 20231020, end: 20231020
  7. FAMOTIDINE [Concomitant]
     Active Substance: FAMOTIDINE
     Dosage: 20 MG, DAILY
     Route: 042
     Dates: start: 20231012, end: 20231012
  8. FAMOTIDINE [Concomitant]
     Active Substance: FAMOTIDINE
     Dosage: 20 MG, DAILY (VIA PERIPHERALLY INSERTED CENTRAL CATHETER)
     Route: 042
     Dates: start: 20231020, end: 20231020

REACTIONS (8)
  - Injection site extravasation [Not Recovered/Not Resolved]
  - Peripheral swelling [Unknown]
  - Pain [Unknown]
  - Blister [Not Recovered/Not Resolved]
  - Erythema [Not Recovered/Not Resolved]
  - Hypoaesthesia [Unknown]
  - Feeling hot [Unknown]
  - Off label use [Unknown]

NARRATIVE: CASE EVENT DATE: 20231012
